FAERS Safety Report 10426250 (Version 1)
Quarter: 2014Q3

REPORT INFORMATION
  Report Type: Spontaneous
  Country: US (occurrence: US)
  Receive Date: 20140903
  Receipt Date: 20140903
  Transmission Date: 20150326
  Serious: Yes (Disabling)
  Sender: FDA-Public Use
  Company Number: US-ASTRAZENECA-2014SE64730

PATIENT
  Age: 70 Year
  Sex: Female
  Weight: 81.6 kg

DRUGS (4)
  1. VITAMIN 50 PLUS [Concomitant]
  2. CELEBREX [Concomitant]
     Active Substance: CELECOXIB
     Indication: ARTHRITIS
  3. CRESTOR [Suspect]
     Active Substance: ROSUVASTATIN CALCIUM
     Indication: BLOOD CHOLESTEROL ABNORMAL
     Route: 048
  4. SENOSIBRATE [Concomitant]
     Indication: BLOOD CHOLESTEROL ABNORMAL
     Dates: start: 201405

REACTIONS (6)
  - Arthritis [Not Recovered/Not Resolved]
  - Road traffic accident [Unknown]
  - Headache [Not Recovered/Not Resolved]
  - Depression [Not Recovered/Not Resolved]
  - Body height decreased [Unknown]
  - Brain injury [Not Recovered/Not Resolved]

NARRATIVE: CASE EVENT DATE: 1999
